FAERS Safety Report 13632409 (Version 4)
Quarter: 2017Q3

REPORT INFORMATION
  Report Type: Spontaneous
  Country: BR (occurrence: BR)
  Receive Date: 20170608
  Receipt Date: 20170713
  Transmission Date: 20171127
  Serious: Yes (Other)
  Sender: FDA-Public Use
  Company Number: BR-ABBVIE-17K-020-2000743-00

PATIENT
  Age: 52 Year
  Sex: Male
  Weight: 104 kg

DRUGS (4)
  1. HUMIRA [Suspect]
     Active Substance: ADALIMUMAB
     Indication: PSORIATIC ARTHROPATHY
     Route: 058
     Dates: start: 201603, end: 201705
  2. ARADOIS [Concomitant]
     Active Substance: LOSARTAN POTASSIUM
     Indication: HYPERTENSION
     Dates: start: 201609
  3. METHOTREXATE. [Concomitant]
     Active Substance: METHOTREXATE
     Indication: PSORIASIS
     Dates: start: 201602
  4. ANCORON [Concomitant]
     Active Substance: AMIODARONE HYDROCHLORIDE
     Indication: PRODUCT USED FOR UNKNOWN INDICATION
     Dates: start: 201609

REACTIONS (6)
  - Lupus-like syndrome [Unknown]
  - Rash erythematous [Not Recovered/Not Resolved]
  - Skin hyperpigmentation [Unknown]
  - Vitiligo [Unknown]
  - Venous thrombosis [Unknown]
  - Skin hypopigmentation [Unknown]

NARRATIVE: CASE EVENT DATE: 201702
